FAERS Safety Report 19421719 (Version 2)
Quarter: 2021Q3

REPORT INFORMATION
  Report Type: Spontaneous
  Country: US (occurrence: US)
  Receive Date: 20210615
  Receipt Date: 20210715
  Transmission Date: 20211014
  Serious: Yes (Other)
  Sender: FDA-Public Use
  Company Number: US-JNJFOC-20210621876

PATIENT
  Age: 16 Year
  Sex: Male
  Weight: 79.45 kg

DRUGS (4)
  1. XARELTO [Suspect]
     Active Substance: RIVAROXABAN
     Indication: THROMBOPHLEBITIS
     Route: 048
  2. XARELTO [Suspect]
     Active Substance: RIVAROXABAN
     Indication: ARTERIOVENOUS MALFORMATION
  3. XARELTO [Suspect]
     Active Substance: RIVAROXABAN
     Indication: KLIPPEL-TRENAUNAY SYNDROME
  4. XARELTO [Suspect]
     Active Substance: RIVAROXABAN
     Indication: THROMBOSIS
     Route: 048
     Dates: start: 2018

REACTIONS (5)
  - Testicular haemorrhage [Recovered/Resolved]
  - Off label use [Unknown]
  - Thrombosis [Unknown]
  - Treatment noncompliance [Unknown]
  - Product use issue [Unknown]
